FAERS Safety Report 8166865-5 (Version None)
Quarter: 2012Q1

REPORT INFORMATION
  Report Type: 
  Country: None (occurrence: None)
  Receive Date: 20120103
  Receipt Date: 20111020
  Transmission Date: 20120608
  Serious: No
  Sender: FDA-Public Use
  Company Number: AE-2011-002551

PATIENT
  Age: 60 Year
  Sex: Male

DRUGS (6)
  1. PREDNISONE TAB [Concomitant]
  2. INCIVEK [Suspect]
     Dosage: 2250 MG (750 MG, 1 IN 8 HR), ORAL
     Route: 048
     Dates: start: 20110819
  3. RIBAVIRIN [Concomitant]
  4. PEGASYS [Concomitant]
  5. ADVAIR HFA [Concomitant]
  6. ALBUTEROL [Concomitant]

REACTIONS (3)
  - INAPPROPRIATE SCHEDULE OF DRUG ADMINISTRATION [None]
  - WEIGHT INCREASED [None]
  - ANAEMIA [None]
